FAERS Safety Report 4762196-1 (Version None)
Quarter: 2005Q3

REPORT INFORMATION
  Report Type: 
  Country: None (occurrence: None)
  Receive Date: 20050906
  Receipt Date: 20050906
  Transmission Date: 20060218
  Serious: Yes (Life-Threatening)
  Sender: FDA-Public Use
  Company Number: None

PATIENT
  Age: 37 Year
  Sex: Male
  Weight: 68.0396 kg

DRUGS (1)
  1. BUPROPION SR    150MG TABLET    WATSO [Suspect]
     Indication: SMOKING CESSATION THERAPY
     Dosage: ONE TABLET   TWO TIMES A -    PO
     Route: 048
     Dates: start: 20050821, end: 20050904

REACTIONS (6)
  - DECREASED APPETITE [None]
  - DEPRESSION [None]
  - SLEEP DISORDER [None]
  - STOMACH DISCOMFORT [None]
  - SUICIDAL IDEATION [None]
  - VOMITING [None]
